FAERS Safety Report 6393619-2 (Version None)
Quarter: 2009Q4

REPORT INFORMATION
  Report Type: 
  Country: None (occurrence: None)
  Receive Date: 20091008
  Receipt Date: 20090925
  Transmission Date: 20100525
  Serious: Yes (Hospitalization)
  Sender: FDA-Public Use
  Company Number: AU-PFIZER INC-2009273851

PATIENT
  Age: 35 Year

DRUGS (1)
  1. ZELDOX [Suspect]
     Dosage: 40 MG, 2X/DAY

REACTIONS (1)
  - HALLUCINATION, VISUAL [None]
